FAERS Safety Report 18536737 (Version 2)
Quarter: 2021Q1

REPORT INFORMATION
  Report Type: Spontaneous
  Country: IT (occurrence: IT)
  Receive Date: 20201123
  Receipt Date: 20210201
  Transmission Date: 20210419
  Serious: Yes (Hospitalization)
  Sender: FDA-Public Use
  Company Number: IT-OTSUKA-2020_028919

PATIENT
  Age: 20 Year
  Sex: Male

DRUGS (1)
  1. ABILIFY [Suspect]
     Active Substance: ARIPIPRAZOLE
     Indication: DRUG ABUSE
     Dosage: 120 MG, TOTAL
     Route: 048
     Dates: start: 20201017, end: 20201017

REACTIONS (5)
  - Drug abuse [Unknown]
  - Hypokinesia [Recovered/Resolved]
  - Somnolence [Recovered/Resolved]
  - Bradyphrenia [Recovered/Resolved]
  - Overdose [Unknown]

NARRATIVE: CASE EVENT DATE: 20201017
